FAERS Safety Report 18300531 (Version 1)
Quarter: 2020Q3

REPORT INFORMATION
  Report Type: Spontaneous
  Country: US (occurrence: US)
  Receive Date: 20200923
  Receipt Date: 20200923
  Transmission Date: 20201103
  Serious: Yes (Hospitalization)
  Sender: FDA-Public Use
  Company Number: None

PATIENT
  Age: 56 Year
  Sex: Male

DRUGS (1)
  1. GLIMEPIRIDE (GLIMEPIRIDE 2MG TAB) [Suspect]
     Active Substance: GLIMEPIRIDE
     Indication: DIABETES MELLITUS
     Route: 048
     Dates: start: 20200204, end: 20200908

REACTIONS (5)
  - Hypophagia [None]
  - Hypoglycaemia [None]
  - Liver injury [None]
  - Acute kidney injury [None]
  - Alcohol use [None]

NARRATIVE: CASE EVENT DATE: 20200828
